FAERS Safety Report 5591167-0 (Version None)
Quarter: 2008Q1

REPORT INFORMATION
  Report Type: 
  Country: None (occurrence: None)
  Receive Date: 20080115
  Receipt Date: 20080108
  Transmission Date: 20080703
  Serious: Yes (Death)
  Sender: FDA-Public Use
  Company Number: US-ROCHE-529209

PATIENT
  Age: 61 Year
  Sex: Female

DRUGS (1)
  1. CELLCEPT [Suspect]
     Indication: DRUG USE FOR UNKNOWN INDICATION
     Route: 065
     Dates: start: 20070401

REACTIONS (1)
  - CARDIAC FAILURE [None]
